FAERS Safety Report 8371850-4 (Version None)
Quarter: 2012Q2

REPORT INFORMATION
  Report Type: 
  Country: None (occurrence: None)
  Receive Date: 20120518
  Receipt Date: 20120514
  Transmission Date: 20120825
  Serious: Yes (Other)
  Sender: FDA-Public Use
  Company Number: US-ROCHE-1069239

PATIENT
  Sex: Male

DRUGS (2)
  1. PEGASYS [Suspect]
     Indication: HEPATITIS C
     Dates: start: 20110716
  2. RIBAVIRIN [Suspect]
     Indication: HEPATITIS C
     Dates: start: 20110716

REACTIONS (1)
  - MIGRAINE [None]
